FAERS Safety Report 6274250-6 (Version None)
Quarter: 2009Q3

REPORT INFORMATION
  Report Type: 
  Country: None (occurrence: None)
  Receive Date: 20090720
  Receipt Date: 20090624
  Transmission Date: 20100115
  Serious: Yes (Hospitalization)
  Sender: FDA-Public Use
  Company Number: GB-ASTRAZENECA-2008GB02081

PATIENT
  Age: 45 Year
  Sex: Female
  Weight: 92.1 kg

DRUGS (7)
  1. TAMOXIFEN CITRATE [Suspect]
     Indication: BREAST CANCER
     Route: 048
     Dates: start: 20081007, end: 20081015
  2. BENDROFLUMETHIAZIDE [Concomitant]
     Indication: HYPERTENSION
     Route: 048
  3. ACETAMINOPHEN W/ CODEINE [Concomitant]
  4. EXEMESTANE [Concomitant]
     Indication: HORMONE SUPPRESSION THERAPY
     Route: 048
     Dates: start: 20080716, end: 20081007
  5. NAPROXEN [Concomitant]
  6. TRIPTAFEN [Concomitant]
     Route: 030
     Dates: start: 20080716
  7. TRIPTORELIN [Concomitant]
     Indication: HORMONE SUPPRESSION THERAPY
     Route: 030
     Dates: start: 20080716, end: 20080909

REACTIONS (2)
  - ELECTROCARDIOGRAM QT PROLONGED [None]
  - SINUS BRADYCARDIA [None]
